FAERS Safety Report 4385531-5 (Version None)
Quarter: 2004Q2

REPORT INFORMATION
  Report Type: 
  Country: None (occurrence: None)
  Receive Date: 20040622
  Receipt Date: 20040608
  Transmission Date: 20050107
  Serious: Yes (Other)
  Sender: FDA-Public Use
  Company Number: 207048

PATIENT
  Age: 14 Year
  Sex: Female

DRUGS (5)
  1. NUTROPIN [Suspect]
     Indication: HYPOPITUITARISM
     Dosage: 1.25 MG,
     Dates: start: 20030722
  2. DDAVP (DESMOPRESSIN ACETATE) [Concomitant]
  3. FISH OIL (FISH OIL) [Concomitant]
  4. LEVOXYL [Concomitant]
  5. PREDNISONE TAB [Concomitant]

REACTIONS (4)
  - GLUCOSE URINE PRESENT [None]
  - HYPERGLYCAEMIA [None]
  - POLYDIPSIA [None]
  - POLYURIA [None]
